FAERS Safety Report 6141555-9 (Version None)
Quarter: 2009Q2

REPORT INFORMATION
  Report Type: 
  Country: None (occurrence: None)
  Receive Date: 20090402
  Receipt Date: 20090327
  Transmission Date: 20091009
  Serious: Yes (Hospitalization)
  Sender: FDA-Public Use
  Company Number: A0704656A

PATIENT
  Age: 60 Year
  Sex: Male
  Weight: 86.4 kg

DRUGS (10)
  1. AVANDIA [Suspect]
     Dosage: 8MG PER DAY
     Route: 048
     Dates: start: 19990101, end: 20070101
  2. ZOCOR [Concomitant]
  3. ACCUPRIL [Concomitant]
  4. INSULIN [Concomitant]
  5. QUINAPRIL [Concomitant]
  6. METOPROLOL [Concomitant]
  7. LOVASTATIN [Concomitant]
  8. PRED FORTE [Concomitant]
  9. ATROPINE [Concomitant]
  10. ASPIRIN [Concomitant]

REACTIONS (7)
  - ANXIETY [None]
  - CARDIAC ARREST [None]
  - CARDIAC VALVE DISEASE [None]
  - CORONARY ARTERY DISEASE [None]
  - MYOCARDIAL INFARCTION [None]
  - RETINOPATHY [None]
  - VENTRICULAR TACHYCARDIA [None]
